FAERS Safety Report 4293868-3 (Version None)
Quarter: 2004Q1

REPORT INFORMATION
  Report Type: 
  Country: None (occurrence: None)
  Receive Date: 20040211
  Receipt Date: 20040126
  Transmission Date: 20041129
  Serious: Yes (Other)
  Sender: FDA-Public Use
  Company Number: 2004IM000181

PATIENT
  Age: 54 Year
  Sex: Male

DRUGS (2)
  1. ADVAFERON (A643_INTERFERON ALFACON-1) [Suspect]
     Indication: HEPATITIS C
     Dosage: 18 MU;QOD;SUBCUTANEOUS
     Route: 058
     Dates: start: 20030809, end: 20040114
  2. CYSTAMET [Concomitant]

REACTIONS (1)
  - INJECTION SITE NECROSIS [None]
